FAERS Safety Report 12262160 (Version 2)
Quarter: 2016Q2

REPORT INFORMATION
  Report Type: Spontaneous
  Country: US (occurrence: US)
  Receive Date: 20160413
  Receipt Date: 20160427
  Transmission Date: 20160815
  Serious: Yes (Other)
  Sender: FDA-Public Use
  Company Number: US-BEH-2016060968

PATIENT
  Sex: Female
  Weight: 125 kg

DRUGS (30)
  1. METFORMIN HCL [Concomitant]
     Active Substance: METFORMIN HYDROCHLORIDE
  2. DIPHENHYDRAMINE. [Concomitant]
     Active Substance: DIPHENHYDRAMINE
  3. PRENATAL VITAMINS [Concomitant]
     Active Substance: VITAMINS
  4. HIZENTRA [Suspect]
     Active Substance: HUMAN IMMUNOGLOBULIN G
     Route: 058
  5. PRILOCAINE [Concomitant]
     Active Substance: PRILOCAINE
  6. SYMBICORT [Concomitant]
     Active Substance: BUDESONIDE\FORMOTEROL FUMARATE DIHYDRATE
  7. LEXAPRO [Concomitant]
     Active Substance: ESCITALOPRAM OXALATE
  8. TRIAZOLAM. [Concomitant]
     Active Substance: TRIAZOLAM
  9. TOBRAMYCIN 0.3% DROPS [Concomitant]
  10. TYLENOL ER [Concomitant]
     Active Substance: ACETAMINOPHEN
  11. OMEPRAZOLE DR [Concomitant]
     Active Substance: OMEPRAZOLE
  12. LIDOCAINE. [Concomitant]
     Active Substance: LIDOCAINE
  13. NINJACOF-A [Concomitant]
     Active Substance: ACETAMINOPHEN\CHLOPHEDIANOL HYDROCHLORIDE\PYRILAMINE MALEATE
  14. CIPRO [Concomitant]
     Active Substance: CIPROFLOXACIN HYDROCHLORIDE
  15. ECHINACEA [Concomitant]
     Active Substance: ECHINACEA, UNSPECIFIED
  16. COD LIVER OIL [Concomitant]
     Active Substance: COD LIVER OIL
  17. SINGULAIR [Concomitant]
     Active Substance: MONTELUKAST SODIUM
  18. VENTOLIN HFA [Concomitant]
     Active Substance: ALBUTEROL SULFATE
  19. NINJACOF-A [Concomitant]
     Active Substance: ACETAMINOPHEN\CHLOPHEDIANOL HYDROCHLORIDE\PYRILAMINE MALEATE
  20. VITAMIN D [Concomitant]
     Active Substance: CHOLECALCIFEROL
  21. EPIPEN [Concomitant]
     Active Substance: EPINEPHRINE
  22. CYCLOBENZAPRINE [Concomitant]
     Active Substance: CYCLOBENZAPRINE
  23. HIZENTRA [Suspect]
     Active Substance: HUMAN IMMUNOGLOBULIN G
     Indication: CONGENITAL HYPOGAMMAGLOBULINAEMIA
  24. HIZENTRA [Suspect]
     Active Substance: HUMAN IMMUNOGLOBULIN G
  25. VESICARE [Concomitant]
     Active Substance: SOLIFENACIN SUCCINATE
  26. TUSSIONEX PENNKINETIC [Concomitant]
     Active Substance: CHLORPHENIRAMINE\HYDROCODONE
  27. LEVOTHYROXINE. [Concomitant]
     Active Substance: LEVOTHYROXINE
  28. ZYRTEC [Concomitant]
     Active Substance: CETIRIZINE HYDROCHLORIDE
  29. VITAMIN B12 [Concomitant]
     Active Substance: CYANOCOBALAMIN
  30. VITAMIN C [Concomitant]
     Active Substance: ASCORBIC ACID

REACTIONS (1)
  - Cholecystectomy [Unknown]
